FAERS Safety Report 8502408-1 (Version None)
Quarter: 2012Q3

REPORT INFORMATION
  Report Type: 
  Country: None (occurrence: None)
  Receive Date: 20120711
  Receipt Date: 20120703
  Transmission Date: 20120928
  Serious: Yes (Other)
  Sender: FDA-Public Use
  Company Number: PE-JNJFOC-20120702524

PATIENT
  Age: 53 Year
  Sex: Female

DRUGS (6)
  1. SULFASALAZINE [Concomitant]
     Route: 065
  2. PROZAC [Concomitant]
     Route: 065
  3. LYRICA [Concomitant]
     Route: 065
  4. CELEBREX [Concomitant]
     Route: 065
  5. REMICADE [Suspect]
     Indication: PRODUCT USED FOR UNKNOWN INDICATION
     Route: 042
  6. LOSARTAN POTASSIUM [Concomitant]
     Route: 065

REACTIONS (1)
  - BURSITIS [None]
